FAERS Safety Report 7166807-5 (Version None)
Quarter: 2010Q4

REPORT INFORMATION
  Report Type: 
  Country: None (occurrence: None)
  Receive Date: 20101216
  Receipt Date: 20101207
  Transmission Date: 20110411
  Serious: Yes (Hospitalization, Other)
  Sender: FDA-Public Use
  Company Number: US-GENZYME-CLOF-1001326

PATIENT
  Sex: Male
  Weight: 73.4 kg

DRUGS (9)
  1. CLOLAR [Suspect]
     Indication: ACUTE MYELOID LEUKAEMIA
     Dosage: 40 MG, QDX5
     Route: 042
     Dates: start: 20101027, end: 20101031
  2. MITOXANTRONE [Suspect]
     Indication: ACUTE MYELOID LEUKAEMIA
     Dosage: 16 MG, QDX3
     Route: 042
     Dates: start: 20101026, end: 20101028
  3. ETOPOSIDE [Suspect]
     Indication: ACUTE MYELOID LEUKAEMIA
     Dosage: 200 MG, QDX5
     Route: 042
     Dates: start: 20101026, end: 20101030
  4. CIPRO [Concomitant]
     Indication: PROPHYLAXIS
     Dosage: 500 MG, BID
     Route: 048
  5. CLARITHROMYCIN [Concomitant]
     Indication: PROPHYLAXIS
     Dosage: 500 MG, BID
  6. POSACONAZOLE [Concomitant]
     Indication: ANTIFUNGAL TREATMENT
     Dosage: 200 MG, TID
     Route: 048
  7. NEXIUM [Concomitant]
     Indication: GASTROOESOPHAGEAL REFLUX DISEASE
     Dosage: 40 MG, QD
     Route: 048
  8. ACYCLOVIR SODIUM [Concomitant]
     Indication: ANTIVIRAL TREATMENT
     Dosage: 400 MG, TID
     Route: 048
  9. LEXAPRO [Concomitant]
     Indication: DEPRESSION
     Dosage: 10 MG, QD
     Route: 048

REACTIONS (2)
  - CAECITIS [None]
  - FEBRILE NEUTROPENIA [None]
